FAERS Safety Report 5240087-X (Version None)
Quarter: 2007Q1

REPORT INFORMATION
  Report Type: 
  Country: None (occurrence: None)
  Receive Date: 20070216
  Receipt Date: 20070205
  Transmission Date: 20070707
  Serious: Yes (Hospitalization)
  Sender: FDA-Public Use
  Company Number: FR-PFIZER INC-2007010492

PATIENT
  Sex: Male
  Weight: 2.7 kg

DRUGS (4)
  1. PHARMORUBICIN [Suspect]
  2. FLUOROURACIL [Suspect]
  3. ENDOXAN [Suspect]
  4. TAXOL [Suspect]

REACTIONS (2)
  - DRUG EXPOSURE DURING PREGNANCY [None]
  - FOETAL DISTRESS SYNDROME [None]
